FAERS Safety Report 5403167-1 (Version None)
Quarter: 2007Q3

REPORT INFORMATION
  Report Type: 
  Country: None (occurrence: None)
  Receive Date: 20070801
  Receipt Date: 20070722
  Transmission Date: 20080115
  Serious: Yes (Other)
  Sender: FDA-Public Use
  Company Number: US-PFIZER INC-2007060308

PATIENT
  Sex: Male
  Weight: 118.18 kg

DRUGS (3)
  1. CELEBREX [Suspect]
     Indication: JOINT SPRAIN
     Dates: start: 20070717, end: 20070721
  2. CELEBREX [Suspect]
     Indication: SWELLING
  3. IBUPROFEN [Suspect]
     Indication: JOINT SPRAIN
     Dates: start: 20070701, end: 20070701

REACTIONS (5)
  - ABDOMINAL PAIN UPPER [None]
  - CHROMATURIA [None]
  - DYSPNOEA [None]
  - FATIGUE [None]
  - POLLAKIURIA [None]
